FAERS Safety Report 7366564-3 (Version None)
Quarter: 2011Q1

REPORT INFORMATION
  Report Type: 
  Country: None (occurrence: None)
  Receive Date: 20110317
  Receipt Date: 20110317
  Transmission Date: 20110831
  Serious: No
  Sender: FDA-Public Use
  Company Number: None

PATIENT
  Sex: Male
  Weight: 53 kg

DRUGS (1)
  1. VISIPAQUE [Suspect]
     Indication: ANGIOGRAM
     Dosage: 80ML
     Dates: start: 20110210, end: 20110210

REACTIONS (7)
  - DIALYSIS [None]
  - RENAL FAILURE ACUTE [None]
  - ASTHENIA [None]
  - HYPOTENSION [None]
  - RENAL FAILURE CHRONIC [None]
  - CONTRAST MEDIA REACTION [None]
  - HAEMODIALYSIS [None]
